FAERS Safety Report 9562195 (Version 2)
Quarter: 2014Q1

REPORT INFORMATION
  Report Type: Spontaneous
  Country: CA (occurrence: CA)
  Receive Date: 20130927
  Receipt Date: 20140228
  Transmission Date: 20141002
  Serious: Yes (Hospitalization, Other)
  Sender: FDA-Public Use
  Company Number: CA-JNJFOC-20130913199

PATIENT
  Age: 16 Year
  Sex: Male
  Weight: 85.8 kg

DRUGS (9)
  1. RISPERIDONE [Suspect]
     Indication: PSYCHOTIC DISORDER
     Route: 065
  2. RISPERIDONE [Suspect]
     Indication: PSYCHOTIC DISORDER
     Route: 065
  3. ACETAMINOPHEN [Suspect]
     Route: 065
  4. ACETAMINOPHEN [Suspect]
     Indication: PRODUCT USED FOR UNKNOWN INDICATION
     Route: 065
  5. CLOZAPINE [Suspect]
     Indication: PSYCHOTIC DISORDER
     Route: 065
  6. FLUOXETINE [Suspect]
     Indication: PRODUCT USED FOR UNKNOWN INDICATION
     Route: 065
  7. LORAZEPAM [Suspect]
     Indication: PRODUCT USED FOR UNKNOWN INDICATION
     Route: 065
  8. OLANZAPINE [Suspect]
     Indication: PSYCHOTIC DISORDER
     Route: 065
  9. QUETIAPINE [Suspect]
     Indication: PRODUCT USED FOR UNKNOWN INDICATION
     Route: 065

REACTIONS (21)
  - Depressed level of consciousness [Unknown]
  - Depression [Unknown]
  - Drug ineffective [Unknown]
  - Dysarthria [Unknown]
  - Dyspnoea [Unknown]
  - Grandiosity [Unknown]
  - Intentional drug misuse [Unknown]
  - Metabolic acidosis [Unknown]
  - Multi-organ failure [Unknown]
  - Neologism [Unknown]
  - Neuroleptic malignant syndrome [Unknown]
  - Overdose [Unknown]
  - Persecutory delusion [Unknown]
  - Pneumonia aspiration [Unknown]
  - Schizoaffective disorder [Unknown]
  - Somatic delusion [Unknown]
  - Thinking abnormal [Unknown]
  - Thought insertion [Unknown]
  - Thought withdrawal [Unknown]
  - Ventricular extrasystoles [Unknown]
  - White blood cell count increased [Unknown]
